FAERS Safety Report 13461469 (Version 1)
Quarter: 2017Q2

REPORT INFORMATION
  Report Type: Spontaneous
  Country: GB (occurrence: GB)
  Receive Date: 20170420
  Receipt Date: 20170420
  Transmission Date: 20170830
  Serious: Yes (Hospitalization)
  Sender: FDA-Public Use
  Company Number: GB-JNJFOC-20170415195

PATIENT
  Age: 66 Year
  Sex: Male
  Weight: 145 kg

DRUGS (17)
  1. DOXAZOSIN [Concomitant]
     Active Substance: DOXAZOSIN\DOXAZOSIN MESYLATE
     Dosage: DOSE 4 (UNIT UNSPECIFIED)
     Route: 065
  2. RAMIPRIL. [Concomitant]
     Active Substance: RAMIPRIL
     Dosage: DOSE 10 (UNIT UNSPECIFIED)
     Route: 065
  3. DULOXETINE. [Concomitant]
     Active Substance: DULOXETINE
     Dosage: DOSE 60 (UNIT UNSPECIFIED)
     Route: 065
  4. INVOKANA [Suspect]
     Active Substance: CANAGLIFLOZIN
     Indication: TYPE 2 DIABETES MELLITUS
     Dosage: DOSE 300 (UNIT UNSPECIFIED)
     Route: 065
     Dates: start: 20150309
  5. COCODAMOL [Concomitant]
     Active Substance: ACETAMINOPHEN\CODEINE PHOSPHATE
     Dosage: DOSE 2 (UNIT UNSPECIFIED), DOSAGE 30MG/500MG
     Route: 065
  6. CLOPIDOGREL [Concomitant]
     Active Substance: CLOPIDOGREL BISULFATE
     Dosage: DOSE 75 (UNIT UNSPECIFIED)
     Route: 065
  7. AMITRIPTYLINE [Concomitant]
     Active Substance: AMITRIPTYLINE
     Dosage: DOSAGE AT NIGHT. DOSE 20 (UNIT UNSPECIFIED)
     Route: 065
  8. DOXAZOSIN [Concomitant]
     Active Substance: DOXAZOSIN\DOXAZOSIN MESYLATE
     Dosage: DOSE 1 (UNITS UNSPECIFIED)
     Route: 065
  9. TRAMADOL. [Concomitant]
     Active Substance: TRAMADOL
     Dosage: ONE OR TWO TO BE TAKEN FOUR TIMES A DAY
     Route: 065
  10. GABAPENTIN. [Concomitant]
     Active Substance: GABAPENTIN
     Dosage: DOSE 600 (UNIT UNSPECIFIED)
     Route: 065
  11. LANSOPRAZOLE. [Concomitant]
     Active Substance: LANSOPRAZOLE
     Dosage: DOSAGE IN THE MORNING. DOSE 15 (UNIT UNSPECIFIED)
     Route: 065
  12. ATORVASTATIN [Concomitant]
     Active Substance: ATORVASTATIN
     Dosage: DOSE 40 (UNIT UNSPECIFIED)
     Route: 065
  13. HUMULIN L [Concomitant]
     Active Substance: INSULIN HUMAN
     Route: 065
  14. SENNA [Concomitant]
     Active Substance: SENNA LEAF\SENNOSIDES\SENNOSIDES A AND B
     Dosage: DOSEGE: ONE OR TWO TO BE TAKEN AT NIGHT
     Route: 065
  15. METFORMIN [Concomitant]
     Active Substance: METFORMIN HYDROCHLORIDE
     Dosage: DOSE 1 (UNIT UNSPECIFIED)
     Route: 065
  16. HYDROXOCOBALAMIN [Concomitant]
     Active Substance: HYDROXOCOBALAMIN
     Dosage: DOSE 1 (UNIT UNSPECIFIED)
     Route: 065
  17. ATENOLOL. [Concomitant]
     Active Substance: ATENOLOL
     Dosage: DOSE 50 (UNIT UNSPECIFIED)
     Route: 065

REACTIONS (2)
  - Diabetic ulcer [Recovering/Resolving]
  - Neuropathic arthropathy [Recovering/Resolving]

NARRATIVE: CASE EVENT DATE: 20160721
